FAERS Safety Report 14988928 (Version 3)
Quarter: 2019Q2

REPORT INFORMATION
  Report Type: Spontaneous
  Country: NO (occurrence: NO)
  Receive Date: 20180608
  Receipt Date: 20190404
  Transmission Date: 20190711
  Serious: Yes (Death, Other)
  Sender: FDA-Public Use
  Company Number: NO-PFIZER INC-2018228323

PATIENT
  Age: 25 Year
  Sex: Male

DRUGS (5)
  1. PROPOFOL HOSPIRA [Suspect]
     Active Substance: PROPOFOL
     Dosage: ICU DAY 2 : 5MG/(KG.H)UNK
  2. PROPOFOL HOSPIRA [Suspect]
     Active Substance: PROPOFOL
     Dosage: ICU DAY 3, REDUCED TO 2.3MG/(KG.H)
     Route: 065
  3. PROPOFOL HOSPIRA [Suspect]
     Active Substance: PROPOFOL
     Dosage: ICU DAY 2 : 3.75MG/(KG.H)UNK
     Route: 065
  4. PROPOFOL HOSPIRA [Suspect]
     Active Substance: PROPOFOL
     Dosage: ICU DAY 1: 3.75-5MG/(KG.H)
     Route: 065
  5. PROPOFOL HOSPIRA [Suspect]
     Active Substance: PROPOFOL
     Indication: STATUS EPILEPTICUS
     Dosage: 4.4-6.2 MG/(KG.H)
     Route: 065

REACTIONS (2)
  - Cardiac arrest [Fatal]
  - Propofol infusion syndrome [Fatal]
